FAERS Safety Report 9161421 (Version 1)
Quarter: 2013Q1

REPORT INFORMATION
  Report Type: Spontaneous
  Country: CA (occurrence: CA)
  Receive Date: 20130313
  Receipt Date: 20130313
  Transmission Date: 20140127
  Serious: Yes (Other)
  Sender: FDA-Public Use
  Company Number: CA-PFIZER INC-2012227059

PATIENT
  Age: 51 Year
  Sex: Female

DRUGS (1)
  1. CHAMPIX [Suspect]
     Indication: SMOKING CESSATION THERAPY
     Dosage: UNK
     Dates: start: 20070721

REACTIONS (8)
  - Violence-related symptom [Recovered/Resolved]
  - Homicidal ideation [Recovered/Resolved]
  - Emotional distress [Recovered/Resolved]
  - Depressed mood [Unknown]
  - Insomnia [Recovered/Resolved]
  - Constipation [Recovered/Resolved]
  - Headache [Recovered/Resolved]
  - Nicotine dependence [Recovered/Resolved]
